FAERS Safety Report 7287374-1 (Version None)
Quarter: 2011Q1

REPORT INFORMATION
  Report Type: 
  Country: None (occurrence: None)
  Receive Date: 20110211
  Receipt Date: 20110207
  Transmission Date: 20110831
  Serious: No
  Sender: FDA-Public Use
  Company Number: US-JNJFOC-20110202676

PATIENT
  Sex: Male
  Weight: 181.44 kg

DRUGS (2)
  1. FENTANYL-100 [Suspect]
     Indication: CHEST PAIN
     Route: 062
  2. OXYCODONE HCL [Concomitant]
     Indication: BREAKTHROUGH PAIN
     Route: 048

REACTIONS (6)
  - DRUG INEFFECTIVE [None]
  - APPLICATION SITE RASH [None]
  - WRONG TECHNIQUE IN DRUG USAGE PROCESS [None]
  - TREATMENT NONCOMPLIANCE [None]
  - PAIN [None]
  - BLOOD PRESSURE DECREASED [None]
